FAERS Safety Report 20917402 (Version 1)
Quarter: 2022Q2

REPORT INFORMATION
  Report Type: Report from Study
  Country: US (occurrence: US)
  Receive Date: 20220606
  Receipt Date: 20220606
  Transmission Date: 20220721
  Serious: Yes (Hospitalization)
  Sender: FDA-Public Use
  Company Number: None

PATIENT
  Age: 77 Year
  Sex: Female
  Weight: 117 kg

DRUGS (24)
  1. POMALIDOMIDE [Suspect]
     Active Substance: POMALIDOMIDE
     Indication: Plasma cell myeloma
     Dosage: DAILY FOR 21 DAYS
     Route: 048
  2. FUROSEMIDE [Concomitant]
     Active Substance: FUROSEMIDE
  3. FOLIC ACID [Concomitant]
     Active Substance: FOLIC ACID
  4. REVLIMID [Concomitant]
     Active Substance: LENALIDOMIDE
  5. NYSTATIN [Concomitant]
     Active Substance: NYSTATIN
  6. DOCUSATE SODIUM [Concomitant]
     Active Substance: DOCUSATE SODIUM
  7. ASPIRIN [Concomitant]
     Active Substance: ASPIRIN
  8. AMLODIPINE BESYLATE [Concomitant]
     Active Substance: AMLODIPINE BESYLATE
  9. MAGNESIUM OXIDE [Concomitant]
     Active Substance: MAGNESIUM OXIDE
  10. SPIRONOLACTONE [Concomitant]
     Active Substance: SPIRONOLACTONE
  11. VITAMINS [Concomitant]
     Active Substance: VITAMINS
  12. ZOMETA [Concomitant]
     Active Substance: ZOLEDRONIC ACID
     Dosage: STRENGTH 4 MG/100 ML
  13. CALCIUM CARBONATE [Concomitant]
     Active Substance: CALCIUM CARBONATE
  14. CULTURELLE [Concomitant]
     Active Substance: LACTOBACILLUS RHAMNOSUS
  15. DAILY-VITE [Concomitant]
  16. DEXAMETHASONE [Concomitant]
     Active Substance: DEXAMETHASONE
  17. IRON [Concomitant]
     Active Substance: IRON
  18. KLOR-CON [Concomitant]
     Active Substance: POTASSIUM CHLORIDE
  19. METOPROLOL TARTRATE [Concomitant]
     Active Substance: METOPROLOL TARTRATE
  20. SPIRONOLACTONE [Concomitant]
     Active Substance: SPIRONOLACTONE
  21. TYLENOL [Concomitant]
     Active Substance: ACETAMINOPHEN
  22. VITAMIN B12 [Concomitant]
     Active Substance: CYANOCOBALAMIN
  23. VITAMIN D3 [Concomitant]
     Active Substance: CHOLECALCIFEROL
  24. XARELTO [Concomitant]
     Active Substance: RIVAROXABAN

REACTIONS (4)
  - Parkinsonism [Unknown]
  - Dysstasia [Unknown]
  - Dizziness [Unknown]
  - Product dose omission issue [Unknown]
